FAERS Safety Report 8600137-7 (Version None)
Quarter: 2012Q3

REPORT INFORMATION
  Report Type: 
  Country: None (occurrence: None)
  Receive Date: 20120817
  Receipt Date: 20120813
  Transmission Date: 20120928
  Serious: Yes (Other)
  Sender: FDA-Public Use
  Company Number: US-AMGEN-USASP2012050948

PATIENT
  Age: 85 Year
  Sex: Female

DRUGS (7)
  1. NORVASC [Concomitant]
  2. CALCIUM PLUS VITAMIN D [Concomitant]
  3. IRON [Concomitant]
  4. LISINOPRIL [Concomitant]
  5. LEVOTHYROXINE SODIUM [Concomitant]
  6. PROLIA [Suspect]
     Indication: OSTEOPOROSIS POSTMENOPAUSAL
     Dosage: 60 MG, Q6MO
     Dates: start: 20120201
  7. ASPIRIN [Concomitant]

REACTIONS (1)
  - OSTEONECROSIS OF JAW [None]
